FAERS Safety Report 13498334 (Version 2)
Quarter: 2018Q1

REPORT INFORMATION
  Report Type: Report from Study
  Country: US (occurrence: US)
  Receive Date: 20170430
  Receipt Date: 20180226
  Transmission Date: 20180508
  Serious: No
  Sender: FDA-Public Use
  Company Number: PHEH2017US012336

PATIENT
  Sex: Male

DRUGS (1)
  1. ENTRESTO [Suspect]
     Active Substance: SACUBITRIL\VALSARTAN
     Indication: CARDIAC FAILURE
     Dosage: 50 MG (24MG SACUBITRIL/ 26MG VALSARTAN), BID
     Route: 048
     Dates: start: 20170409

REACTIONS (2)
  - Influenza [Unknown]
  - Therapeutic response unexpected [Unknown]
